FAERS Safety Report 17524398 (Version 1)
Quarter: 2020Q1

REPORT INFORMATION
  Report Type: Report from Study
  Country: US (occurrence: US)
  Receive Date: 20200311
  Receipt Date: 20200311
  Transmission Date: 20200409
  Serious: Yes (Hospitalization, Other)
  Sender: FDA-Public Use
  Company Number: US-TEVA-2019-US-1066813

PATIENT
  Age: 74 Year
  Sex: Female

DRUGS (1)
  1. AJOVY [Suspect]
     Active Substance: FREMANEZUMAB-VFRM
     Indication: MIGRAINE
     Dosage: LAST DOSE ADMINISTERED BEFORE AE : ^3 WEEKS OR A MONTH AGO^ MONTHLY
     Route: 058
     Dates: start: 201904, end: 201906

REACTIONS (5)
  - Chest pain [Recovered/Resolved]
  - Atrial fibrillation [Unknown]
  - Bradycardia [Recovered/Resolved]
  - Heart rate decreased [Recovered/Resolved]
  - Drug ineffective [Unknown]

NARRATIVE: CASE EVENT DATE: 201904
